FAERS Safety Report 9479630 (Version 1)
Quarter: 2013Q3

REPORT INFORMATION
  Report Type: Report from Study
  Country: BR (occurrence: BR)
  Receive Date: 20130827
  Receipt Date: 20130827
  Transmission Date: 20140515
  Serious: Yes (Other)
  Sender: FDA-Public Use
  Company Number: PHHY2013BR093053

PATIENT
  Sex: Female

DRUGS (3)
  1. EXELON PATCH [Suspect]
     Indication: DEMENTIA ALZHEIMER^S TYPE
     Dosage: 4.6 MG (PATCH 5 CM2), DAILY
     Route: 062
     Dates: start: 201306, end: 201307
  2. EXELON PATCH [Suspect]
     Dosage: 9.5 MG (PATCH 10 CM2), DAILY IN THE MORNING
     Route: 062
     Dates: start: 201307
  3. RISPERIDONE [Concomitant]
     Indication: AGGRESSION
     Dosage: 1 TABLET MASHED AND MIXED ON MILK, DAILY
     Route: 048

REACTIONS (5)
  - Hallucination [Recovering/Resolving]
  - Aggression [Recovering/Resolving]
  - Delirium [Recovering/Resolving]
  - Asthenia [Not Recovered/Not Resolved]
  - Decreased appetite [Recovered/Resolved]
